FAERS Safety Report 6103584-0 (Version None)
Quarter: 2009Q1

REPORT INFORMATION
  Report Type: 
  Country: None (occurrence: None)
  Receive Date: 20090305
  Receipt Date: 20090219
  Transmission Date: 20090719
  Serious: No
  Sender: FDA-Public Use
  Company Number: US-ASTRAZENECA-2009UW04794

PATIENT
  Age: 49 Year
  Sex: Female
  Weight: 117.9 kg

DRUGS (5)
  1. PRILOSEC [Suspect]
     Indication: GASTROOESOPHAGEAL REFLUX DISEASE
     Route: 048
  2. PRILOSEC [Suspect]
     Route: 048
     Dates: start: 20080801
  3. NEURONTIN [Concomitant]
     Indication: MULTIPLE SCLEROSIS
  4. INDERAL [Concomitant]
  5. LEVOXYL [Concomitant]

REACTIONS (2)
  - ABDOMINAL DISCOMFORT [None]
  - NAUSEA [None]
